FAERS Safety Report 7559480-5 (Version None)
Quarter: 2011Q2

REPORT INFORMATION
  Report Type: 
  Country: None (occurrence: None)
  Receive Date: 20110613
  Receipt Date: 20110603
  Transmission Date: 20111010
  Serious: Yes (Hospitalization)
  Sender: FDA-Public Use
  Company Number: USA/USA/11/0018612

PATIENT
  Age: 63 Year
  Sex: Male
  Weight: 81.6475 kg

DRUGS (2)
  1. CRESTOR [Concomitant]
  2. GLIMEPIRIDE [Suspect]
     Indication: DIABETES MELLITUS
     Dosage: 1 MG, 1 D, ORAL
     Route: 048
     Dates: start: 20110425, end: 20110525

REACTIONS (10)
  - INSOMNIA [None]
  - GASTROOESOPHAGEAL REFLUX DISEASE [None]
  - CHILLS [None]
  - DYSPNOEA [None]
  - COUNTERFEIT DRUG ADMINISTERED [None]
  - VOMITING [None]
  - CHEST PAIN [None]
  - PARAESTHESIA [None]
  - PRODUCT QUALITY ISSUE [None]
  - HYPERHIDROSIS [None]
